FAERS Safety Report 4334859-3 (Version None)
Quarter: 2004Q2

REPORT INFORMATION
  Report Type: 
  Country: None (occurrence: None)
  Receive Date: 20040405
  Receipt Date: 20040324
  Transmission Date: 20050107
  Serious: Yes (Hospitalization)
  Sender: FDA-Public Use
  Company Number: JP-JNJFOC-20040303797

PATIENT
  Age: 35 Year
  Sex: Male
  Weight: 50 kg

DRUGS (11)
  1. REMICADE [Suspect]
     Indication: ANAL FISTULA
     Dosage: 250 MG, 1 IN 1 AS NECESSARY, INTRAVENOUS DRIP
     Route: 041
     Dates: start: 20020627, end: 20020627
  2. REMICADE [Suspect]
     Indication: CROHN'S DISEASE
     Dosage: 250 MG, 1 IN 1 AS NECESSARY, INTRAVENOUS DRIP
     Route: 041
     Dates: start: 20020627, end: 20020627
  3. REMICADE [Suspect]
     Indication: ANAL FISTULA
     Dosage: 250 MG, 1 IN 1 AS NECESSARY, INTRAVENOUS DRIP
     Route: 041
     Dates: start: 20020725, end: 20020725
  4. REMICADE [Suspect]
     Indication: CROHN'S DISEASE
     Dosage: 250 MG, 1 IN 1 AS NECESSARY, INTRAVENOUS DRIP
     Route: 041
     Dates: start: 20020725, end: 20020725
  5. PENTASA [Concomitant]
  6. MINOCIN [Concomitant]
  7. ENTERAL NUTRITION (SOLUTIONS FOR PARENTERAL NUTRITION) [Concomitant]
  8. MINOMYCIN (MINOCYCLINE HYDROCHLORIDE) [Concomitant]
  9. ELENTAL (ELENTAL) [Concomitant]
  10. LOPERAMIDE HCL [Concomitant]
  11. CODEINE PHOSPHATE (CODEINE PHOSPHATE) [Concomitant]

REACTIONS (2)
  - RASH PAPULAR [None]
  - TUBERCULOSIS [None]
